FAERS Safety Report 9234573 (Version 1)
Quarter: 2013Q2

REPORT INFORMATION
  Report Type: Spontaneous
  Country: US (occurrence: US)
  Receive Date: 20130416
  Receipt Date: 20130416
  Transmission Date: 20140414
  Serious: No
  Sender: FDA-Public Use
  Company Number: US-009507513-1304USA006390

PATIENT
  Age: 23 Year
  Sex: Female
  Weight: 53.97 kg

DRUGS (1)
  1. NUVARING [Suspect]
     Indication: CONTRACEPTION
     Dosage: 1 DF, QM, 3 WEEKS IN ONE WEEK RING FREE BREAK
     Route: 067
     Dates: start: 20130405

REACTIONS (2)
  - Metrorrhagia [Unknown]
  - Urinary tract infection [Unknown]
